FAERS Safety Report 9444319 (Version 1)
Quarter: 2013Q3

REPORT INFORMATION
  Report Type: Spontaneous
  Country: US (occurrence: None)
  Receive Date: 20130805
  Receipt Date: 20130805
  Transmission Date: 20140515
  Serious: Yes (Death, Life-Threatening)
  Sender: FDA-Public Use
  Company Number: 20130371

PATIENT
  Age: 51 Year
  Sex: Male

DRUGS (6)
  1. CLONIDINE HCL [Suspect]
  2. NALOXONE [Suspect]
  3. PROPOFOL [Suspect]
  4. BENZODIAZEPINE [Suspect]
     Indication: PRODUCT USED FOR UNKNOWN INDICATION
  5. PHENTOLAMINE [Suspect]
     Indication: PRODUCT USED FOR UNKNOWN INDICATION
     Route: 042
  6. SEVOFLURANE [Suspect]

REACTIONS (4)
  - Ventricular fibrillation [None]
  - Hypokalaemia [None]
  - Hypoxic-ischaemic encephalopathy [None]
  - Toxicity to various agents [None]
